FAERS Safety Report 17934679 (Version 1)
Quarter: 2020Q2

REPORT INFORMATION
  Report Type: Spontaneous
  Country: US (occurrence: US)
  Receive Date: 20200623
  Receipt Date: 20200623
  Transmission Date: 20200714
  Serious: Yes (Hospitalization)
  Sender: FDA-Public Use
  Company Number: None

PATIENT
  Age: 62 Year
  Sex: Male

DRUGS (5)
  1. TYLENOL 8HR [Concomitant]
     Active Substance: ACETAMINOPHEN
  2. VALSARTAN. [Concomitant]
     Active Substance: VALSARTAN
  3. HUMIRA [Suspect]
     Active Substance: ADALIMUMAB
     Indication: PRODUCT USED FOR UNKNOWN INDICATION
     Dosage: OTHER FREQUENCY:Q2WK;?
     Route: 058
     Dates: start: 20190530
  4. HYDROCO/APAP [Concomitant]
     Active Substance: ACETAMINOPHEN\HYDROCODONE
  5. ELIQUIS [Concomitant]
     Active Substance: APIXABAN

REACTIONS (2)
  - Embolism [None]
  - Cellulitis [None]

NARRATIVE: CASE EVENT DATE: 202006
